FAERS Safety Report 18591915 (Version 4)
Quarter: 2020Q4

REPORT INFORMATION
  Report Type: Spontaneous
  Country: CN (occurrence: CN)
  Receive Date: 20201208
  Receipt Date: 20201215
  Transmission Date: 20210114
  Serious: Yes (Death, Other)
  Sender: FDA-Public Use
  Company Number: CN-JNJFOC-20201209369

PATIENT
  Age: 70 Year
  Sex: Female

DRUGS (11)
  1. RIVAROXABAN [Suspect]
     Active Substance: RIVAROXABAN
     Indication: ANTICOAGULANT THERAPY
  2. SPIRONOLACTONE. [Concomitant]
     Active Substance: SPIRONOLACTONE
     Indication: POLYURIA
  3. DOXOFYLLINE [Concomitant]
     Active Substance: DOXOFYLLINE
     Indication: MUSCLE SPASMS
  4. RIVAROXABAN [Suspect]
     Active Substance: RIVAROXABAN
     Indication: ATRIAL FIBRILLATION
     Dosage: 15 MG, BID
     Route: 048
     Dates: start: 20191020
  5. MOXIFLOXACIN ORAL [Concomitant]
     Active Substance: MOXIFLOXACIN
     Indication: ANTI-INFECTIVE THERAPY
     Dosage: UNK
     Dates: start: 20191013
  6. RIVAROXABAN [Suspect]
     Active Substance: RIVAROXABAN
     Indication: VENOUS THROMBOSIS LIMB
  7. CEFOPERAZONE SODIUM;TAZOBACTAM [Concomitant]
     Indication: ANTI-INFECTIVE THERAPY
  8. METHYLPREDNISOLONE. [Concomitant]
     Active Substance: METHYLPREDNISOLONE
     Indication: ANTIINFLAMMATORY THERAPY
  9. FUROSEMIDE. [Concomitant]
     Active Substance: FUROSEMIDE
     Indication: POLYURIA
  10. METOPROLOL. [Concomitant]
     Active Substance: METOPROLOL
     Indication: ARRHYTHMIA
  11. ATORVASTATIN CALCIUM. [Concomitant]
     Active Substance: ATORVASTATIN CALCIUM

REACTIONS (4)
  - Coagulopathy [Recovering/Resolving]
  - Blood uric acid increased [Recovering/Resolving]
  - Gastrointestinal haemorrhage [Recovering/Resolving]
  - Renal injury [Recovering/Resolving]

NARRATIVE: CASE EVENT DATE: 20191106
